FAERS Safety Report 8178613-3 (Version None)
Quarter: 2012Q1

REPORT INFORMATION
  Report Type: 
  Country: None (occurrence: None)
  Receive Date: 20120301
  Receipt Date: 20120229
  Transmission Date: 20120608
  Serious: Yes (Death, Other)
  Sender: FDA-Public Use
  Company Number: CO-ABBOTT-12P-036-0910108-00

PATIENT
  Sex: Female

DRUGS (1)
  1. HUMIRA [Suspect]
     Indication: RHEUMATOID ARTHRITIS
     Route: 058
     Dates: start: 20090102, end: 20120207

REACTIONS (6)
  - RENAL FAILURE [None]
  - HEPATOMEGALY [None]
  - CHILLS [None]
  - PNEUMONIA [None]
  - MALAISE [None]
  - DYSPNOEA [None]
